FAERS Safety Report 23640104 (Version 2)
Quarter: 2024Q1

REPORT INFORMATION
  Report Type: Spontaneous
  Country: DE (occurrence: DE)
  Receive Date: 20240317
  Receipt Date: 20240326
  Transmission Date: 20240409
  Serious: Yes (Life-Threatening, Hospitalization, Other)
  Sender: FDA-Public Use
  Company Number: None

PATIENT
  Age: 62 Year
  Sex: Male
  Weight: 78 kg

DRUGS (11)
  1. PEMETREXED [Suspect]
     Active Substance: PEMETREXED
     Indication: Non-small cell lung cancer
     Dosage: SINCE 03/23 MAINTENANCE THERAPY
     Dates: start: 202303
  2. PEMBROLIZUMAB [Suspect]
     Active Substance: PEMBROLIZUMAB
     Indication: Non-small cell lung cancer
     Dates: start: 202212
  3. INFLIXIMAB [Concomitant]
     Active Substance: INFLIXIMAB
     Indication: Pneumonitis
     Dosage: 0-1-0
     Dates: start: 20240201
  4. PIPERACILLIN AND TAZOBACTAM [Concomitant]
     Active Substance: PIPERACILLIN SODIUM\TAZOBACTAM SODIUM
     Indication: Pneumonia
     Dosage: 4.5 G 1-1-1-1
     Dates: start: 20240127, end: 20240131
  5. COTRIM [Concomitant]
     Active Substance: SULFAMETHOXAZOLE\TRIMETHOPRIM
     Indication: Pneumonia
     Dosage: 1600 MG /320 MG 1-1-1-1
     Dates: start: 20240128, end: 20240131
  6. PREDNISOLONE [Concomitant]
     Active Substance: PREDNISOLONE
     Indication: Pneumonitis
     Dosage: 1-0-0
     Dates: start: 20240127
  7. AZITHROMYCIN [Concomitant]
     Active Substance: AZITHROMYCIN
     Indication: Pneumonia
     Dosage: 1-0-0
     Dates: start: 20240127, end: 20240131
  8. CLARITHROMYCIN [Concomitant]
     Active Substance: CLARITHROMYCIN
     Indication: Pneumonia
     Dates: start: 20240125, end: 20240127
  9. AMOXICILLIN\CLAVULANATE POTASSIUM [Concomitant]
     Active Substance: AMOXICILLIN\CLAVULANATE POTASSIUM
     Indication: Pneumonia
     Dates: start: 20240118, end: 20240125
  10. PEMETREXED [Suspect]
     Active Substance: PEMETREXED
     Indication: Non-small cell lung cancer
     Dates: start: 202212
  11. PEMBROLIZUMAB [Suspect]
     Active Substance: PEMBROLIZUMAB
     Indication: Non-small cell lung cancer
     Dosage: SEIT 03/23 ERHALTUNGSTHERAPIE
     Dates: start: 202303

REACTIONS (2)
  - Respiratory failure [Not Recovered/Not Resolved]
  - Pneumonitis [Not Recovered/Not Resolved]

NARRATIVE: CASE EVENT DATE: 20240117
